FAERS Safety Report 5678437-2 (Version None)
Quarter: 2008Q1

REPORT INFORMATION
  Report Type: 
  Country: None (occurrence: None)
  Receive Date: 20080320
  Receipt Date: 20080310
  Transmission Date: 20080703
  Serious: Yes (Death)
  Sender: FDA-Public Use
  Company Number: GXKR2008PH02524

PATIENT
  Age: 94 Year
  Sex: Male
  Weight: 43.2 kg

DRUGS (2)
  1. AZITHROMYCIN [Suspect]
     Indication: PNEUMONIA
     Dosage: ORAL
     Route: 048
     Dates: start: 20080219, end: 20080220
  2. SINEMET [Concomitant]

REACTIONS (1)
  - DYSPNOEA [None]
